FAERS Safety Report 4719234-1 (Version None)
Quarter: 2005Q3

REPORT INFORMATION
  Report Type: 
  Country: None (occurrence: None)
  Receive Date: 20050719
  Receipt Date: 20050719
  Transmission Date: 20060218
  Serious: Yes (Hospitalization)
  Sender: FDA-Public Use
  Company Number: None

PATIENT
  Age: 42 Year
  Sex: Female

DRUGS (11)
  1. TAXOTERE [Suspect]
     Indication: BREAST CANCER
     Dosage: 180 MG IV Q 2 WEEKS
     Route: 042
     Dates: start: 20050429
  2. TAXOTERE [Suspect]
     Indication: BREAST CANCER
     Dosage: 180 MG IV Q 2 WEEKS
     Route: 042
     Dates: start: 20050513
  3. KYTRIL [Suspect]
     Dosage: 1MG
     Dates: start: 20050429
  4. KYTRIL [Suspect]
     Dosage: 1MG
     Dates: start: 20050513
  5. DECADRON [Suspect]
     Dosage: 20 MG
     Route: 042
     Dates: start: 20050429
  6. DECADRON [Suspect]
     Dosage: 20 MG
     Route: 042
     Dates: start: 20050513
  7. AMBIEN [Concomitant]
  8. PAXIL [Concomitant]
  9. COREG [Concomitant]
  10. ZYRTEC [Concomitant]
  11. ZESTRIL [Concomitant]

REACTIONS (3)
  - PAIN OF SKIN [None]
  - RASH [None]
  - SKIN EXFOLIATION [None]
